FAERS Safety Report 23343392 (Version 2)
Quarter: 2024Q1

REPORT INFORMATION
  Report Type: Spontaneous
  Country: US (occurrence: US)
  Receive Date: 20231227
  Receipt Date: 20240119
  Transmission Date: 20240410
  Serious: Yes (Other)
  Sender: FDA-Public Use
  Company Number: US-PFIZER INC-202300445459

PATIENT
  Age: 69 Year
  Sex: Female
  Weight: 83.91 kg

DRUGS (1)
  1. DEPO-ESTRADIOL [Suspect]
     Active Substance: ESTRADIOL CYPIONATE
     Indication: Hysterectomy
     Dosage: EVERY THREE WEEKS
     Dates: start: 2021, end: 202307

REACTIONS (8)
  - Hot flush [Recovering/Resolving]
  - Product availability issue [Unknown]
  - Therapy interrupted [Unknown]
  - Condition aggravated [Unknown]
  - Burning sensation [Unknown]
  - Hyperhidrosis [Unknown]
  - Off label use [Unknown]
  - Product dose omission issue [Unknown]

NARRATIVE: CASE EVENT DATE: 20230901
